FAERS Safety Report 18593345 (Version 2)
Quarter: 2020Q4

REPORT INFORMATION
  Report Type: Report from Study
  Country: US (occurrence: US)
  Receive Date: 20201209
  Receipt Date: 20201228
  Transmission Date: 20210114
  Serious: No
  Sender: FDA-Public Use
  Company Number: NVSC2020US327851

PATIENT
  Age: 65 Year
  Sex: Female

DRUGS (2)
  1. MAYZENT [Suspect]
     Active Substance: SIPONIMOD
     Indication: PRODUCT USED FOR UNKNOWN INDICATION
     Dosage: 2 UNK
     Route: 065
     Dates: start: 20201124, end: 20201214
  2. MAYZENT [Suspect]
     Active Substance: SIPONIMOD
     Dosage: 2 UNK
     Route: 048
     Dates: start: 20201204, end: 20201204

REACTIONS (5)
  - Headache [Recovered/Resolved]
  - Somnolence [Recovered/Resolved]
  - Blood pressure increased [Unknown]
  - Agitation [Recovered/Resolved]
  - Hypertension [Recovered/Resolved]

NARRATIVE: CASE EVENT DATE: 20201124
